FAERS Safety Report 9287928 (Version 2)
Quarter: 2014Q3

REPORT INFORMATION
  Report Type: Spontaneous
  Country: US (occurrence: US)
  Receive Date: 20130514
  Receipt Date: 20140805
  Transmission Date: 20150326
  Serious: Yes (Other)
  Sender: FDA-Public Use
  Company Number: US-BAYER-2013-059233

PATIENT
  Age: 27 Year
  Sex: Female
  Weight: 158.73 kg

DRUGS (11)
  1. YASMIN [Suspect]
     Active Substance: DROSPIRENONE\ETHINYL ESTRADIOL
     Indication: CONTRACEPTION
     Dosage: UNK
     Dates: start: 200901, end: 201001
  2. AUGMENTIN [Concomitant]
     Active Substance: AMOXICILLIN\CLAVULANATE POTASSIUM
     Indication: OTITIS MEDIA
     Dosage: 500 MG, TID
     Route: 048
     Dates: start: 20100702
  3. PERCOCET [Concomitant]
     Active Substance: ACETAMINOPHEN\OXYCODONE HYDROCHLORIDE
     Indication: OTITIS MEDIA
     Dosage: 5/325 TWO
     Route: 048
     Dates: start: 20100629, end: 20100701
  4. AURALGAN [BENZOCAINE,HYDROXYQUINOLINE SULFATE] [Concomitant]
     Indication: EAR PAIN
     Dosage: 1 DROPPER FUL IN RIGHT EAR CANAL
     Dates: start: 20100701, end: 20100702
  5. YAZ [Suspect]
     Active Substance: DROSPIRENONE\ETHINYL ESTRADIOL
     Dosage: UNK
     Dates: start: 200301, end: 2011
  6. AMOXICILLIN. [Concomitant]
     Active Substance: AMOXICILLIN
     Indication: OTITIS MEDIA
     Dosage: 875 MG, BID
     Route: 048
     Dates: start: 20100629, end: 20100701
  7. YASMIN [Suspect]
     Active Substance: DROSPIRENONE\ETHINYL ESTRADIOL
     Indication: ACNE
  8. LIDOCAINE. [Concomitant]
     Active Substance: LIDOCAINE
     Dosage: 2.1 ML, UNK
     Route: 030
     Dates: start: 20100629
  9. ROCEPHIN [Concomitant]
     Active Substance: CEFTRIAXONE SODIUM
     Indication: OTITIS MEDIA
     Dosage: 1 G, UNK
     Route: 030
     Dates: start: 20100629
  10. PERCOCET [Concomitant]
     Active Substance: ACETAMINOPHEN\OXYCODONE HYDROCHLORIDE
     Indication: PAIN
     Dosage: 1 OR 2 TABLETS EVREY HOUR TO 6 HOURS AS NEEDED
     Route: 048
     Dates: start: 20100629, end: 20100702
  11. AUGMENTIN [Concomitant]
     Active Substance: AMOXICILLIN\CLAVULANATE POTASSIUM
     Indication: OTITIS MEDIA
     Dosage: 500 MG, ONCE
     Route: 048
     Dates: start: 20100701

REACTIONS (10)
  - Deep vein thrombosis [None]
  - Thrombosis [None]
  - Anxiety [None]
  - Genital haemorrhage [None]
  - Emotional distress [None]
  - Abdominal pain [None]
  - Pain [None]
  - Mental disorder [None]
  - Injury [None]
  - General physical health deterioration [None]

NARRATIVE: CASE EVENT DATE: 201008
